FAERS Safety Report 8141370-0 (Version None)
Quarter: 2012Q1

REPORT INFORMATION
  Report Type: 
  Country: None (occurrence: None)
  Receive Date: 20120216
  Receipt Date: 20120206
  Transmission Date: 20120608
  Serious: Yes (Hospitalization)
  Sender: FDA-Public Use
  Company Number: PHEH2012US003409

PATIENT
  Sex: Male

DRUGS (5)
  1. TASIGNA [Suspect]
     Indication: NEOPLASM MALIGNANT
     Dosage: 150 MG, DAILY
     Route: 048
     Dates: start: 20101214
  2. TASIGNA [Suspect]
     Indication: CHRONIC MYELOID LEUKAEMIA
  3. TASIGNA [Suspect]
     Indication: ANAEMIA
  4. MIRALAX [Concomitant]
  5. TASIGNA [Suspect]
     Indication: RENAL FAILURE CHRONIC

REACTIONS (3)
  - BACK PAIN [None]
  - FAECALOMA [None]
  - STRESS FRACTURE [None]
